FAERS Safety Report 7269531-3 (Version None)
Quarter: 2011Q1

REPORT INFORMATION
  Report Type: 
  Country: None (occurrence: None)
  Receive Date: 20110202
  Receipt Date: 20110119
  Transmission Date: 20110831
  Serious: Yes (Hospitalization, Other)
  Sender: FDA-Public Use
  Company Number: US-RANBAXY-2011RR-41510

PATIENT
  Sex: Female

DRUGS (4)
  1. TEQUIN [Suspect]
     Indication: INFECTION
     Dosage: UNK
     Route: 065
     Dates: start: 20020101
  2. CIPROFLOXACIN [Suspect]
     Indication: INFECTION
     Dosage: 750 MG, UNK
     Route: 065
     Dates: start: 20021022
  3. PREDNISOLONE [Suspect]
     Indication: ANTIINFLAMMATORY THERAPY
     Dosage: UNK
     Route: 065
     Dates: start: 20000501, end: 20100101
  4. LEVAQUIN [Suspect]

REACTIONS (3)
  - TENDON RUPTURE [None]
  - ROTATOR CUFF SYNDROME [None]
  - ARTHRALGIA [None]
